FAERS Safety Report 25611139 (Version 1)
Quarter: 2025Q3

REPORT INFORMATION
  Report Type: Spontaneous
  Country: EU (occurrence: EU)
  Receive Date: 20250728
  Receipt Date: 20250728
  Transmission Date: 20251021
  Serious: Yes (Other)
  Sender: AUROBINDO
  Company Number: EU-AUROBINDO-AUR-APL-2025-037897

PATIENT
  Sex: Female

DRUGS (7)
  1. LEFLUNOMIDE [Suspect]
     Active Substance: LEFLUNOMIDE
     Indication: Systemic lupus erythematosus
     Route: 065
  2. MYCOPHENOLIC ACID [Suspect]
     Active Substance: MYCOPHENOLIC ACID
     Indication: Systemic lupus erythematosus
     Route: 065
  3. METHOTREXATE [Suspect]
     Active Substance: METHOTREXATE
     Indication: Systemic lupus erythematosus
     Route: 065
  4. BELIMUMAB [Suspect]
     Active Substance: BELIMUMAB
     Indication: Systemic lupus erythematosus
     Route: 065
  5. RITUXIMAB [Suspect]
     Active Substance: RITUXIMAB
     Indication: Systemic lupus erythematosus
     Route: 065
  6. ANIFROLUMAB [Suspect]
     Active Substance: ANIFROLUMAB
     Indication: Systemic lupus erythematosus
     Route: 065
  7. BARICITINIB [Concomitant]
     Active Substance: BARICITINIB
     Indication: Systemic lupus erythematosus
     Route: 065

REACTIONS (1)
  - Treatment failure [Unknown]
